FAERS Safety Report 8331714-9 (Version None)
Quarter: 2012Q2

REPORT INFORMATION
  Report Type: 
  Country: None (occurrence: None)
  Receive Date: 20120502
  Receipt Date: 20120104
  Transmission Date: 20120825
  Serious: No
  Sender: FDA-Public Use
  Company Number: US-ASTRAZENECA-2012SE00967

PATIENT
  Sex: Female

DRUGS (2)
  1. ENTOCORT EC [Suspect]
     Indication: INFLAMMATORY BOWEL DISEASE
     Dosage: GENERIC BUDEZONIDE, TAKE ONA A DAY, SOMETIMES TWO OR THREE
     Route: 048
     Dates: start: 20110101
  2. ENTOCORT EC [Suspect]
     Route: 048
     Dates: start: 20110101

REACTIONS (2)
  - CUSHINGOID [None]
  - OFF LABEL USE [None]
